FAERS Safety Report 5748424-4 (Version None)
Quarter: 2008Q2

REPORT INFORMATION
  Report Type: 
  Country: None (occurrence: None)
  Receive Date: 20080523
  Receipt Date: 20080515
  Transmission Date: 20081010
  Serious: Yes (Hospitalization)
  Sender: FDA-Public Use
  Company Number: JP-MERCK-0805USA04579

PATIENT
  Sex: Female

DRUGS (5)
  1. HYZAAR [Suspect]
     Indication: HYPERTENSION
     Route: 048
     Dates: start: 20080402, end: 20080410
  2. NORVASC [Concomitant]
     Route: 048
  3. ROCORNAL [Concomitant]
     Route: 048
  4. MUCOSTA [Concomitant]
     Route: 048
  5. OLMETEC [Concomitant]
     Route: 048
     Dates: end: 20080401

REACTIONS (1)
  - BRADYARRHYTHMIA [None]
